FAERS Safety Report 18542434 (Version 1)
Quarter: 2020Q4

REPORT INFORMATION
  Report Type: Spontaneous
  Country: DE (occurrence: DE)
  Receive Date: 20201124
  Receipt Date: 20201124
  Transmission Date: 20210114
  Serious: Yes (Other)
  Sender: FDA-Public Use
  Company Number: DE-ASTRAZENECA-2020SF53753

PATIENT

DRUGS (6)
  1. FULVESTRANT. [Suspect]
     Active Substance: FULVESTRANT
     Dosage: UNKNOWN
     Route: 030
     Dates: start: 201611, end: 201702
  2. EVEROLIMUS. [Concomitant]
     Active Substance: EVEROLIMUS
     Indication: ENDOCRINE DISORDER
     Dates: start: 201702
  3. EVEROLIMUS. [Concomitant]
     Active Substance: EVEROLIMUS
     Indication: ENDOCRINE DISORDER
     Dates: start: 201612
  4. TAMOXIFEN [Concomitant]
     Active Substance: TAMOXIFEN
     Dates: start: 201612
  5. TAMOXIFEN [Concomitant]
     Active Substance: TAMOXIFEN
     Dates: start: 201702
  6. ZOLEDRONAT [Concomitant]
     Active Substance: ZOLEDRONIC ACID
     Dates: start: 201611

REACTIONS (7)
  - Carbohydrate antigen 15-3 increased [Unknown]
  - Metastases to liver [Unknown]
  - Metastases to lung [Unknown]
  - Metastases to skin [Unknown]
  - Metastases to bone [Unknown]
  - Pleural effusion [Unknown]
  - Transaminases increased [Unknown]

NARRATIVE: CASE EVENT DATE: 201612
